FAERS Safety Report 13775763 (Version 1)
Quarter: 2017Q3

REPORT INFORMATION
  Report Type: Spontaneous
  Country: US (occurrence: US)
  Receive Date: 20170721
  Receipt Date: 20170721
  Transmission Date: 20171127
  Serious: Yes (Disabling, Other)
  Sender: FDA-Public Use
  Company Number: None

PATIENT
  Age: 90 Year
  Sex: Female

DRUGS (10)
  1. OXYCODONE AND ACETAMINOPHEN [Concomitant]
     Active Substance: ACETAMINOPHEN\OXYCODONE HYDROCHLORIDE
  2. MIACALCIN [Concomitant]
     Active Substance: CALCITONIN SALMON
  3. LORAZEPAM. [Concomitant]
     Active Substance: LORAZEPAM
  4. FENTANYL TRANSDERMAL SYSTEM [Suspect]
     Active Substance: FENTANYL
     Indication: PAIN
     Dosage: 25 Q3DAYS TOP
     Route: 061
  5. METOPROL ER [Concomitant]
  6. NEXIUM [Concomitant]
     Active Substance: ESOMEPRAZOLE MAGNESIUM
  7. CELEBREX [Concomitant]
     Active Substance: CELECOXIB
  8. ONDANSETRON ODT [Concomitant]
     Active Substance: ONDANSETRON
  9. REQUIP [Concomitant]
     Active Substance: ROPINIROLE HYDROCHLORIDE
  10. LEVOTHYROXINE. [Concomitant]
     Active Substance: LEVOTHYROXINE

REACTIONS (4)
  - Withdrawal syndrome [None]
  - Macular degeneration [None]
  - Photopsia [None]
  - Vision blurred [None]

NARRATIVE: CASE EVENT DATE: 20170525
